FAERS Safety Report 15228093 (Version 2)
Quarter: 2018Q3

REPORT INFORMATION
  Report Type: Spontaneous
  Country: CH (occurrence: CH)
  Receive Date: 20180801
  Receipt Date: 20180807
  Transmission Date: 20181010
  Serious: Yes (Other)
  Sender: FDA-Public Use
  Company Number: CH-ASTRAZENECA-2018SE95377

PATIENT
  Age: 202 Month
  Sex: Female

DRUGS (18)
  1. OSPEN [Concomitant]
     Active Substance: PENICILLIN V
  2. CALCIMAGON D3 [Concomitant]
     Active Substance: CALCIUM\CHOLECALCIFEROL
  3. PROVERA [Concomitant]
     Active Substance: MEDROXYPROGESTERONE ACETATE
  4. VALTREX [Concomitant]
     Active Substance: VALACYCLOVIR HYDROCHLORIDE
  5. TRAMAL [Concomitant]
     Active Substance: TRAMADOL
     Indication: MIGRAINE
     Dosage: AS NECESSARY
  6. ONDANSETRON [Concomitant]
     Active Substance: ONDANSETRON
     Dosage: AS NECESSARY
  7. NEXIUM MUPS [Suspect]
     Active Substance: ESOMEPRAZOLE MAGNESIUM
     Route: 048
     Dates: end: 20180628
  8. SANDIMMUN NEORAL [Suspect]
     Active Substance: CYCLOSPORINE
     Route: 048
     Dates: end: 20180630
  9. DAFALGAN [Suspect]
     Active Substance: ACETAMINOPHEN
     Dosage: UNK, AS NEEDED (MAXIMAL 1G 4X/DAY)
     Route: 065
  10. METHOTREXATE. [Concomitant]
     Active Substance: METHOTREXATE
     Dates: start: 20180322, end: 20180328
  11. URSOFALK [Concomitant]
     Active Substance: URSODIOL
     Dates: start: 20180409
  12. LEUCOVORINE [Concomitant]
     Active Substance: LEUCOVORIN
  13. ELMEX [Concomitant]
     Active Substance: DECTAFLUR\OLAFLUR\SODIUM FLUORIDE
  14. PREVNAR 13 [Suspect]
     Active Substance: PNEUMOCOCCAL 13-VALENT CONJUGATE VACCINE
     Dosage: 1.0DF UNKNOWN
     Route: 065
     Dates: start: 20180628, end: 20180628
  15. FLUCONAZOLE. [Suspect]
     Active Substance: FLUCONAZOLE
     Dosage: 400.0MG UNKNOWN
     Route: 048
     Dates: start: 20180409, end: 20180628
  16. BACTRIM [Suspect]
     Active Substance: SULFAMETHOXAZOLE\TRIMETHOPRIM
     Dosage: 1 DF 800/160 MG, 3X/WEEK
     Route: 048
     Dates: start: 20180315, end: 20180705
  17. WELLVONE [Concomitant]
     Active Substance: ATOVAQUONE
     Dates: start: 20180705
  18. EXCIPIAL U10 LIPOLOTION [Concomitant]

REACTIONS (2)
  - Liver function test abnormal [Recovered/Resolved]
  - Liver injury [Recovered/Resolved]

NARRATIVE: CASE EVENT DATE: 201807
